FAERS Safety Report 24700036 (Version 1)
Quarter: 2024Q4

REPORT INFORMATION
  Report Type: Spontaneous
  Country: CA (occurrence: CA)
  Receive Date: 20241205
  Receipt Date: 20241205
  Transmission Date: 20250114
  Serious: Yes (Other)
  Sender: CELLTRION
  Company Number: CA-PFIZER INC-202400243958

PATIENT

DRUGS (4)
  1. INFLECTRA [Suspect]
     Active Substance: INFLIXIMAB-DYYB
     Indication: Colitis ulcerative
     Dosage: 700 MG, EVERY 8 WEEKS (INDUCTION WEEK 0, 2, 6 THEN MAINTENANCE EVERY 8 WEEKS)
     Route: 042
     Dates: start: 20240822
  2. INFLECTRA [Suspect]
     Active Substance: INFLIXIMAB-DYYB
     Dosage: 700MG, AFTER 2 WEEKS (W2)
     Route: 042
     Dates: start: 20240905
  3. INFLECTRA [Suspect]
     Active Substance: INFLIXIMAB-DYYB
     Dosage: 700 MG, EVERY 8 WEEKS (INDUCTION WEEK 0, 2, 6 THEN MAINTENANCE EVERY 8 WEEKS, WEEK: 6)
     Route: 042
     Dates: start: 20241002
  4. INFLECTRA [Suspect]
     Active Substance: INFLIXIMAB-DYYB
     Dosage: 700 MG, EVERY 8 WEEKS (INDUCTION WEEK 0, 2, 6 THEN MAINTENANCE EVERY 8 WEEKS)
     Route: 042
     Dates: start: 20241127

REACTIONS (9)
  - Loss of consciousness [Unknown]
  - Syncope [Unknown]
  - Dizziness [Unknown]
  - Presyncope [Recovering/Resolving]
  - Blood pressure diastolic decreased [Unknown]
  - Heart rate decreased [Unknown]
  - Condition aggravated [Not Recovered/Not Resolved]
  - Pallor [Recovering/Resolving]
  - Off label use [Unknown]

NARRATIVE: CASE EVENT DATE: 20240101
